FAERS Safety Report 6363265-5 (Version None)
Quarter: 2009Q3

REPORT INFORMATION
  Report Type: 
  Country: None (occurrence: None)
  Receive Date: 20090919
  Receipt Date: 20090623
  Transmission Date: 20100115
  Serious: No
  Sender: FDA-Public Use
  Company Number: US-ABBOTT-09P-163-0581769-00

PATIENT
  Sex: Female

DRUGS (2)
  1. HUMIRA [Suspect]
     Indication: PSORIASIS
     Dosage: DAY 1
     Route: 058
     Dates: start: 20090619
  2. LUMBAR STEROID INJECTIONS [Concomitant]
     Indication: DRUG USE FOR UNKNOWN INDICATION
     Dosage: SERIES OF 3, ONE EVERY 3 MONTHS + 1-2 INJECTIONS IN KNEES

REACTIONS (2)
  - FALL [None]
  - INJECTION SITE IRRITATION [None]
